FAERS Safety Report 6862591-0 (Version None)
Quarter: 2010Q3

REPORT INFORMATION
  Report Type: 
  Country: None (occurrence: None)
  Receive Date: 20100721
  Receipt Date: 20100712
  Transmission Date: 20110219
  Serious: Yes (Hospitalization)
  Sender: FDA-Public Use
  Company Number: BR-ELI_LILLY_AND_COMPANY-BR201003000068

PATIENT
  Sex: Female
  Weight: 69.4 kg

DRUGS (7)
  1. GEMCITABINE HCL [Suspect]
     Indication: BREAST CANCER METASTATIC
     Dosage: 1250 MG/M2, OTHER
     Route: 042
     Dates: start: 20090930
  2. PACLITAXEL [Suspect]
     Indication: BREAST CANCER METASTATIC
     Dosage: 175 MG/M2, OTHER
     Route: 042
     Dates: start: 20090930
  3. ONDANSETRON [Concomitant]
     Dosage: UNK, UNKNOWN
     Route: 065
     Dates: start: 20100127, end: 20100127
  4. DEXAMETHASONE /00016002/ [Concomitant]
     Dosage: UNK, UNKNOWN
     Route: 065
     Dates: start: 20100127, end: 20100127
  5. RANITIDINE [Concomitant]
     Dosage: UNK, UNKNOWN
     Route: 065
     Dates: start: 20100127, end: 20100127
  6. FENERGAN [Concomitant]
     Dosage: UNK, UNKNOWN
     Route: 065
     Dates: start: 20100127, end: 20100127
  7. DIPHENHYDRAMINE [Concomitant]
     Dosage: UNK, UNKNOWN
     Route: 065
     Dates: start: 20100127, end: 20100127

REACTIONS (1)
  - INJECTION SITE REACTION [None]
